FAERS Safety Report 9026346 (Version 1)
Quarter: 2012Q4

REPORT INFORMATION
  Report Type: Spontaneous
  Country: IT (occurrence: None)
  Receive Date: 20121211
  Receipt Date: 20121211
  Transmission Date: 20130627
  Serious: Yes (Hospitalization, Other)
  Sender: FDA-Public Use
  Company Number: AUR-APL-2012-05225

PATIENT
  Age: 62 Year
  Sex: Male

DRUGS (1)
  1. MOXICILLIN (AMOXICILLIN) [Suspect]
     Indication: DRUG USE FOR UNKNOWN INDICATION
     Route: 048
     Dates: start: 20120902, end: 20120908

REACTIONS (2)
  - Urticaria [None]
  - Pruritus [None]
